FAERS Safety Report 5364918-8 (Version None)
Quarter: 2007Q2

REPORT INFORMATION
  Report Type: 
  Country: None (occurrence: None)
  Receive Date: 20070621
  Receipt Date: 20070611
  Transmission Date: 20071010
  Serious: Yes (Other)
  Sender: FDA-Public Use
  Company Number: US-AMGEN-US135455

PATIENT
  Sex: Male

DRUGS (4)
  1. ENBREL [Suspect]
     Indication: RHEUMATOID ARTHRITIS
     Route: 058
     Dates: start: 20021028, end: 20050225
  2. PLAQUENIL [Concomitant]
  3. BEXTRA [Concomitant]
  4. DECADRON [Concomitant]

REACTIONS (1)
  - SPINOCEREBELLAR DISORDER [None]
